FAERS Safety Report 16109057 (Version 1)
Quarter: 2019Q1

REPORT INFORMATION
  Report Type: Spontaneous
  Country: US (occurrence: US)
  Receive Date: 20190323
  Receipt Date: 20190323
  Transmission Date: 20190418
  Serious: No
  Sender: FDA-Public Use
  Company Number: US-THERAPEUTICSMD-2019TMD00072

PATIENT
  Age: 60 Year
  Sex: Female
  Weight: 68.93 kg

DRUGS (3)
  1. UNSPECIFIED INHALER FOR COPD [Concomitant]
  2. IMVEXXY [Suspect]
     Active Substance: ESTRADIOL
     Indication: VULVOVAGINAL DRYNESS
     Dosage: 10 ?G, 2X/WEEK IN THE AFTERNOONS
     Route: 067
     Dates: start: 201806, end: 201809
  3. IMVEXXY [Suspect]
     Active Substance: ESTRADIOL
     Indication: UTERINE PROLAPSE

REACTIONS (4)
  - Product dose omission [Not Recovered/Not Resolved]
  - Off label use [Recovered/Resolved]
  - Joint dislocation [Recovering/Resolving]
  - Vulvovaginal dryness [Not Recovered/Not Resolved]

NARRATIVE: CASE EVENT DATE: 2018
